FAERS Safety Report 25099009 (Version 1)
Quarter: 2025Q1

REPORT INFORMATION
  Report Type: Spontaneous
  Country: CA (occurrence: None)
  Receive Date: 20250320
  Receipt Date: 20250320
  Transmission Date: 20250409
  Serious: Yes (Other)
  Sender: ORION
  Company Number: CA-PFIZER INC-202500059567

PATIENT
  Age: 60 Year
  Sex: Male

DRUGS (2)
  1. METHOTREXATE [Suspect]
     Active Substance: METHOTREXATE
     Indication: Product used for unknown indication
     Dosage: STRENGTH: 2.5 MG
  2. RUXIENCE [Suspect]
     Active Substance: RITUXIMAB-PVVR
     Indication: Rheumatoid arthritis
     Dates: start: 20241002, end: 20241016

REACTIONS (8)
  - Eyelid ptosis [Unknown]
  - Upper respiratory tract infection [Unknown]
  - Heart rate increased [Unknown]
  - Parotid gland enlargement [Unknown]
  - Alanine aminotransferase increased [Unknown]
  - Complement factor C4 increased [Unknown]
  - Rheumatoid factor increased [Unknown]
  - Anti-cyclic citrullinated peptide antibody positive [Unknown]

NARRATIVE: CASE EVENT DATE: 20240101
